FAERS Safety Report 4845668-0 (Version None)
Quarter: 2005Q4

REPORT INFORMATION
  Report Type: 
  Country: None (occurrence: None)
  Receive Date: 20051206
  Receipt Date: 20051025
  Transmission Date: 20060501
  Serious: Yes (Other)
  Sender: FDA-Public Use
  Company Number: DE-BOEHRINGER INGELHEIM PHARMACEUTICALS, INC.-2005-DE-04493DE

PATIENT

DRUGS (2)
  1. VIRAMUNE [Suspect]
  2. TRUVADA [Concomitant]

REACTIONS (1)
  - THERAPY NON-RESPONDER [None]
